FAERS Safety Report 5060482-1 (Version None)
Quarter: 2006Q3

REPORT INFORMATION
  Report Type: 
  Country: None (occurrence: None)
  Receive Date: 20060719
  Receipt Date: 20060719
  Transmission Date: 20061208
  Serious: Yes (Hospitalization)
  Sender: FDA-Public Use
  Company Number: None

PATIENT
  Age: 2 Year
  Sex: Female
  Weight: 17 kg

DRUGS (2)
  1. RITUXIMAB [Suspect]
     Indication: OPSOCLONUS MYOCLONUS
     Dosage: 375 MG/M2 IV X 4
     Route: 042
     Dates: start: 20051127, end: 20051214
  2. ACTH (ACTHAR GEL) [Suspect]
     Indication: OPSOCLONUS MYOCLONUS
     Dosage: 0.12 CC IM QOD
     Route: 030
     Dates: start: 20050901

REACTIONS (5)
  - DRUG INTOLERANCE [None]
  - ESCHERICHIA URINARY TRACT INFECTION [None]
  - ORAL INTAKE REDUCED [None]
  - PYREXIA [None]
  - VOMITING [None]
